FAERS Safety Report 21908711 (Version 1)
Quarter: 2023Q1

REPORT INFORMATION
  Report Type: Spontaneous
  Country: GR (occurrence: GR)
  Receive Date: 20230125
  Receipt Date: 20230125
  Transmission Date: 20230418
  Serious: Yes (Hospitalization, Other)
  Sender: FDA-Public Use
  Company Number: GR-PFIZER INC-202300028510

PATIENT
  Age: 90 Year
  Sex: Female

DRUGS (1)
  1. CLINDAMYCIN [Suspect]
     Active Substance: CLINDAMYCIN
     Indication: Erysipelas
     Dosage: UNK

REACTIONS (4)
  - Erythema [Unknown]
  - Haematochezia [Unknown]
  - Vasculitis [Unknown]
  - Swelling face [Unknown]
